FAERS Safety Report 17895248 (Version 4)
Quarter: 2020Q3

REPORT INFORMATION
  Report Type: Spontaneous
  Country: US (occurrence: US)
  Receive Date: 20200615
  Receipt Date: 20200724
  Transmission Date: 20201103
  Serious: No
  Sender: FDA-Public Use
  Company Number: NVSC2020US164823

PATIENT
  Age: 78 Year
  Sex: Female
  Weight: 54.9 kg

DRUGS (7)
  1. TYVASO [Suspect]
     Active Substance: TREPROSTINIL
     Dosage: 18 UG, QID
     Route: 055
     Dates: start: 20200506
  2. TYVASO [Suspect]
     Active Substance: TREPROSTINIL
     Dosage: UNK UNK, UNKNOWN
     Route: 055
  3. TYVASO [Suspect]
     Active Substance: TREPROSTINIL
     Dosage: UNK
     Route: 055
     Dates: start: 20200629
  4. METOPROLOL TARTRATE. [Suspect]
     Active Substance: METOPROLOL TARTRATE
     Indication: PRODUCT USED FOR UNKNOWN INDICATION
     Dosage: 12.5 MG, BID
     Route: 065
     Dates: start: 20200605
  5. TYVASO [Suspect]
     Active Substance: TREPROSTINIL
     Indication: PULMONARY ARTERIAL HYPERTENSION
     Dosage: 18 UG (3 BREATHS), QID
     Route: 055
     Dates: start: 20200529
  6. TYVASO [Suspect]
     Active Substance: TREPROSTINIL
     Dosage: 18?54UG,  QID
     Route: 055
  7. ADEMPAS [Concomitant]
     Active Substance: RIOCIGUAT
     Indication: PULMONARY ARTERIAL HYPERTENSION
     Dosage: UNK UNK, UNKNOWN
     Route: 065

REACTIONS (8)
  - Blood pressure decreased [Unknown]
  - Cough [Not Recovered/Not Resolved]
  - Dizziness [Not Recovered/Not Resolved]
  - Nasal congestion [Unknown]
  - Dyspnoea exertional [Not Recovered/Not Resolved]
  - Palpitations [Not Recovered/Not Resolved]
  - Headache [Not Recovered/Not Resolved]
  - Nausea [Not Recovered/Not Resolved]

NARRATIVE: CASE EVENT DATE: 2020
